FAERS Safety Report 18335224 (Version 1)
Quarter: 2020Q4

REPORT INFORMATION
  Report Type: Spontaneous
  Country: RU (occurrence: RU)
  Receive Date: 20201001
  Receipt Date: 20201001
  Transmission Date: 20210113
  Serious: Yes (Other)
  Sender: FDA-Public Use
  Company Number: NVSC2020RU263371

PATIENT

DRUGS (4)
  1. LETROZOLE. [Suspect]
     Active Substance: LETROZOLE
     Indication: HORMONE THERAPY
     Dosage: UNK
     Route: 065
     Dates: start: 201908
  2. RIBOCICLIB. [Suspect]
     Active Substance: RIBOCICLIB
     Indication: PRODUCT USED FOR UNKNOWN INDICATION
     Dosage: UNK
     Route: 065
     Dates: start: 201908
  3. ZOLEDRONIC ACID [Concomitant]
     Active Substance: ZOLEDRONIC ACID
     Indication: OSTEOPATHIC TREATMENT
     Dosage: UNK(ONCE EVERY 28 DAYS)
     Route: 065
     Dates: start: 201908
  4. ZOLADEX [Concomitant]
     Active Substance: GOSERELIN ACETATE
     Indication: THERAPEUTIC OVARIAN SUPPRESSION
     Dosage: UNK
     Route: 065
     Dates: start: 201908

REACTIONS (2)
  - Metastases to bone [Unknown]
  - Spinal compression fracture [Unknown]
